FAERS Safety Report 9105101 (Version 5)
Quarter: 2014Q2

REPORT INFORMATION
  Report Type: Spontaneous
  Country: US (occurrence: US)
  Receive Date: 20130220
  Receipt Date: 20140404
  Transmission Date: 20141212
  Serious: Yes (Hospitalization, Other)
  Sender: FDA-Public Use
  Company Number: US-009507513-1302USA009102

PATIENT
  Sex: Female

DRUGS (8)
  1. FOSAMAX [Suspect]
     Indication: OSTEOPOROSIS
     Dosage: 10 MG, QW
     Route: 048
     Dates: start: 2001, end: 200805
  2. FOSAMAX [Suspect]
     Indication: OSTEOPENIA
     Dosage: 70 MG, QW
     Route: 048
     Dates: start: 2001, end: 200805
  3. ALENDRONATE SODIUM [Suspect]
     Indication: OSTEOPENIA
     Dosage: 70 MG, QW
     Route: 048
     Dates: start: 200805, end: 200812
  4. ALENDRONATE SODIUM [Suspect]
     Indication: OSTEOPOROSIS
  5. VITAMINS (UNSPECIFIED) [Concomitant]
     Dosage: UNK, QD
     Dates: start: 2000
  6. VITAMIN D (UNSPECIFIED) [Concomitant]
     Dosage: UNK, QD
     Dates: start: 2000
  7. CALCIUM (UNSPECIFIED) (+) MAGNESIUM (UNSPECIFIED) (+) VITAMIN D (UNSPE [Concomitant]
     Dosage: 500 MG, BID
     Dates: start: 1990, end: 2010
  8. ASCORBIC ACID [Concomitant]
     Dosage: 500 MG, BID
     Dates: start: 1990

REACTIONS (14)
  - Femur fracture [Unknown]
  - Intramedullary rod insertion [Unknown]
  - Fall [Unknown]
  - Ulna fracture [Unknown]
  - Fall [Unknown]
  - Patella fracture [Unknown]
  - Tooth extraction [Unknown]
  - Inappropriate schedule of drug administration [Unknown]
  - Depression [Unknown]
  - Blood cholesterol increased [Not Recovered/Not Resolved]
  - Barrett^s oesophagus [Unknown]
  - Hypothyroidism [Unknown]
  - Osteoporosis [Unknown]
  - Myalgia [Unknown]
